FAERS Safety Report 13661420 (Version 1)
Quarter: 2017Q2

REPORT INFORMATION
  Report Type: Spontaneous
  Country: US (occurrence: US)
  Receive Date: 20170616
  Receipt Date: 20170616
  Transmission Date: 20170830
  Serious: No
  Sender: FDA-Public Use
  Company Number: US-US WORLDMEDS, LLC-USW201611-000759

PATIENT
  Age: 59 Year
  Sex: Male

DRUGS (24)
  1. AMANTADINE HCL [Concomitant]
     Active Substance: AMANTADINE HYDROCHLORIDE
     Route: 048
  2. BENADRYL [Concomitant]
     Active Substance: DIPHENHYDRAMINE HYDROCHLORIDE
     Route: 048
  3. FINASTERIDE. [Concomitant]
     Active Substance: FINASTERIDE
     Route: 048
  4. NITROFURANTOIN. [Concomitant]
     Active Substance: NITROFURANTOIN
     Route: 048
  5. APOKYN [Suspect]
     Active Substance: APOMORPHINE HYDROCHLORIDE
  6. GLYBURIDE. [Concomitant]
     Active Substance: GLYBURIDE
     Route: 048
  7. LISINOPRIL. [Concomitant]
     Active Substance: LISINOPRIL
     Route: 048
  8. NOVOLOG [Concomitant]
     Active Substance: INSULIN ASPART
     Route: 058
  9. COLACE [Concomitant]
     Active Substance: DOCUSATE SODIUM
     Route: 048
  10. ROBAFEN DM [Concomitant]
     Route: 048
  11. TRAZODONE [Concomitant]
     Active Substance: TRAZODONE HYDROCHLORIDE
     Route: 048
  12. HUMALOG [Concomitant]
     Active Substance: INSULIN LISPRO
     Route: 058
  13. ASPIRIN. [Concomitant]
     Active Substance: ASPIRIN
     Route: 048
  14. DEXTROSE. [Concomitant]
     Active Substance: DEXTROSE
     Route: 048
  15. IBUPROFEN. [Concomitant]
     Active Substance: IBUPROFEN
     Route: 048
  16. MELATONIN [Concomitant]
     Active Substance: MELATONIN
     Route: 048
  17. APOKYN [Suspect]
     Active Substance: APOMORPHINE HYDROCHLORIDE
     Indication: PARKINSON^S DISEASE
     Dates: start: 20161109, end: 20161109
  18. APOKYN [Suspect]
     Active Substance: APOMORPHINE HYDROCHLORIDE
  19. APOKYN [Suspect]
     Active Substance: APOMORPHINE HYDROCHLORIDE
     Dates: start: 20161109, end: 20161109
  20. BIOFREEZE [Concomitant]
     Active Substance: MENTHOL
     Route: 061
  21. JANUVIA [Concomitant]
     Active Substance: SITAGLIPTIN PHOSPHATE
     Route: 048
  22. METFORMIN [Concomitant]
     Active Substance: METFORMIN HYDROCHLORIDE
     Route: 048
  23. TAMSULOSIN [Concomitant]
     Active Substance: TAMSULOSIN
     Route: 048
  24. HUMALOG [Concomitant]
     Active Substance: INSULIN LISPRO
     Route: 058

REACTIONS (5)
  - Nausea [Recovered/Resolved]
  - Asthenia [Unknown]
  - Speech disorder [Unknown]
  - Drug ineffective [Unknown]
  - Tremor [Unknown]

NARRATIVE: CASE EVENT DATE: 20161109
